FAERS Safety Report 17067872 (Version 1)
Quarter: 2019Q4

REPORT INFORMATION
  Report Type: Spontaneous
  Country: US (occurrence: US)
  Receive Date: 20191122
  Receipt Date: 20191122
  Transmission Date: 20200122
  Serious: No
  Sender: FDA-Public Use
  Company Number: US-BIODELIVERY SCIENCES INTERNATIONAL-2019BDSI0379

PATIENT
  Age: 59 Year
  Sex: Female
  Weight: 45.4 kg

DRUGS (4)
  1. BUPRENORPHINE. [Suspect]
     Active Substance: BUPRENORPHINE
     Route: 002
     Dates: start: 20190523, end: 2019
  2. BUPRENORPHINE. [Suspect]
     Active Substance: BUPRENORPHINE
     Dosage: 1 FILM OF 300 MCG IN THE MORNING
     Route: 002
     Dates: start: 2019
  3. BUPRENORPHINE. [Suspect]
     Active Substance: BUPRENORPHINE
     Dosage: 1 FILM OF 150 MCG IN THE NIGHT
     Route: 002
     Dates: start: 2019
  4. BUPRENORPHINE. [Suspect]
     Active Substance: BUPRENORPHINE
     Indication: PAIN
     Route: 002
     Dates: start: 20190507, end: 20190522

REACTIONS (14)
  - Joint swelling [Not Recovered/Not Resolved]
  - Product prescribing error [Unknown]
  - Product solubility abnormal [Unknown]
  - Headache [Recovered/Resolved]
  - Abdominal pain upper [Not Recovered/Not Resolved]
  - Dysuria [Recovered/Resolved]
  - Pain [Recovering/Resolving]
  - Drug ineffective [Not Recovered/Not Resolved]
  - Pain in extremity [Recovering/Resolving]
  - Breakthrough pain [Not Recovered/Not Resolved]
  - Diarrhoea [Recovered/Resolved]
  - Paraesthesia [Recovering/Resolving]
  - Nausea [Recovered/Resolved]
  - Nasopharyngitis [Not Recovered/Not Resolved]

NARRATIVE: CASE EVENT DATE: 201905
